FAERS Safety Report 5564635-5 (Version None)
Quarter: 2007Q4

REPORT INFORMATION
  Report Type: 
  Country: None (occurrence: None)
  Receive Date: 20071212
  Receipt Date: 20071126
  Transmission Date: 20080405
  Serious: Yes (Other)
  Sender: FDA-Public Use
  Company Number: S07-GER-06122-01

PATIENT
  Age: 80 Year
  Sex: Female

DRUGS (4)
  1. MEMANTINE HCL [Suspect]
     Indication: DEMENTIA
  2. LISINOPRIL [Concomitant]
  3. PANTOZOL(PANTOPRAZOLE SODIUM) [Concomitant]
  4. DICLOFENAC [Concomitant]

REACTIONS (2)
  - ATRIOVENTRICULAR BLOCK COMPLETE [None]
  - ATRIOVENTRICULAR BLOCK SECOND DEGREE [None]
